FAERS Safety Report 18491272 (Version 1)
Quarter: 2020Q4

REPORT INFORMATION
  Report Type: Spontaneous
  Country: DE (occurrence: DE)
  Receive Date: 20201111
  Receipt Date: 20201111
  Transmission Date: 20210114
  Serious: Yes (Life-Threatening, Hospitalization)
  Sender: FDA-Public Use
  Company Number: DE-TEVA-2020-DE-1846224

PATIENT
  Age: 80 Year
  Sex: Female

DRUGS (10)
  1. LERCANIDIPINE [Concomitant]
     Active Substance: LERCANIDIPINE
     Dosage: 20 MG, 0.5-0-0-1 UNIT DOSE:25MILLIGRAM
     Route: 048
  2. INDAPAMIDE. [Suspect]
     Active Substance: INDAPAMIDE
     Dosage: 2.5 MILLIGRAM DAILY; 1-0-0-0
     Route: 048
  3. MOXONIDINE [Concomitant]
     Active Substance: MOXONIDINE
     Dosage: 0.2 MG, 1-0-2-0,UNIT DOSE:0.6MILLIGRAM
     Route: 048
  4. NIFEDIPINE. [Concomitant]
     Active Substance: NIFEDIPINE
     Dosage: 10 MG, IF NECESSARY
     Route: 048
  5. TORASEMID [Suspect]
     Active Substance: TORSEMIDE
     Dosage: .5 DOSAGE FORMS DAILY; 10 MG, 0.5-0-0-0:MEDICATION ERRORS
     Route: 048
  6. NATRIUMCHLORID [Concomitant]
     Active Substance: SODIUM CHLORIDE
     Dosage: NK MG, 2-1-1-0,
     Route: 048
  7. CANDESARTAN. [Concomitant]
     Active Substance: CANDESARTAN
     Dosage: 32 MILLIGRAM DAILY; 1-0-0-0
     Route: 048
  8. SPIRONOLACTONE. [Suspect]
     Active Substance: SPIRONOLACTONE
     Dosage: 25 MILLIGRAM DAILY; 50 MG, 0.5-0-0-0
     Route: 048
  9. BISOPROLOL [Concomitant]
     Active Substance: BISOPROLOL
     Dosage: 10 MILLIGRAM DAILY;  1-0-0-1
     Route: 048
  10. CALCIGEN D INTENS 1000MG/880I.E. [Concomitant]
     Dosage: 1 DOSAGE FORMS DAILY; 1000 | 880 MG / IU, 1-0-0-0
     Route: 048

REACTIONS (7)
  - Psychomotor retardation [Unknown]
  - Nausea [Unknown]
  - Therapeutic drug monitoring analysis not performed [Unknown]
  - Dizziness [Unknown]
  - Vertigo [Unknown]
  - Electrolyte imbalance [Unknown]
  - General physical health deterioration [Unknown]
